FAERS Safety Report 6507556-3 (Version None)
Quarter: 2009Q4

REPORT INFORMATION
  Report Type: 
  Country: None (occurrence: None)
  Receive Date: 20091221
  Receipt Date: 20091211
  Transmission Date: 20100525
  Serious: Yes (Hospitalization)
  Sender: FDA-Public Use
  Company Number: GXKR2009CN13382

PATIENT
  Age: 74 Year
  Sex: Male

DRUGS (1)
  1. CLONAZEPAM (NGX) [Suspect]
     Indication: POOR QUALITY SLEEP
     Dosage: AT NIGHT
     Route: 065

REACTIONS (3)
  - CHEST DISCOMFORT [None]
  - ELECTROCARDIOGRAM RR INTERVAL PROLONGED [None]
  - PALPITATIONS [None]
